FAERS Safety Report 25458642 (Version 1)
Quarter: 2025Q2

REPORT INFORMATION
  Report Type: Spontaneous
  Country: IT (occurrence: IT)
  Receive Date: 20250620
  Receipt Date: 20250620
  Transmission Date: 20250716
  Serious: Yes (Hospitalization, Other)
  Sender: STRIDES
  Company Number: IT-STRIDES ARCOLAB LIMITED-2025SP007235

PATIENT
  Age: 21 Year
  Sex: Male
  Weight: 83 kg

DRUGS (14)
  1. CALCITRIOL [Suspect]
     Active Substance: CALCITRIOL
     Indication: Prophylaxis
     Route: 065
  2. CALCITRIOL [Suspect]
     Active Substance: CALCITRIOL
     Route: 048
  3. CALCITRIOL [Suspect]
     Active Substance: CALCITRIOL
     Route: 048
  4. CALCITRIOL [Suspect]
     Active Substance: CALCITRIOL
     Route: 048
  5. CALCITRIOL [Suspect]
     Active Substance: CALCITRIOL
     Route: 048
  6. CINACALCET [Suspect]
     Active Substance: CINACALCET
     Indication: Prophylaxis
     Route: 065
  7. CINACALCET [Suspect]
     Active Substance: CINACALCET
     Route: 065
  8. CALCIUM CARBONATE [Suspect]
     Active Substance: CALCIUM CARBONATE
     Indication: Supplementation therapy
     Route: 048
  9. CALCIUM CARBONATE [Suspect]
     Active Substance: CALCIUM CARBONATE
     Route: 065
  10. PHOSPHORUS [Suspect]
     Active Substance: PHOSPHORUS
     Indication: Hereditary hypophosphataemic rickets
     Route: 065
  11. PHOSPHORUS [Suspect]
     Active Substance: PHOSPHORUS
     Route: 065
  12. CALCIUM GLUCONATE [Suspect]
     Active Substance: CALCIUM GLUCONATE
     Indication: Supplementation therapy
     Route: 042
  13. CALCIUM GLUCONATE [Suspect]
     Active Substance: CALCIUM GLUCONATE
     Route: 042
  14. MAGNESIUM PIDOLATE [Concomitant]
     Active Substance: MAGNESIUM PIDOLATE
     Indication: Supplementation therapy
     Route: 065

REACTIONS (4)
  - Hungry bone syndrome [Recovered/Resolved]
  - Hypocalcaemia [Recovered/Resolved]
  - Nephrocalcinosis [Recovered/Resolved]
  - Off label use [Unknown]
